FAERS Safety Report 21593710 (Version 1)
Quarter: 2022Q4

REPORT INFORMATION
  Report Type: Spontaneous
  Country: US (occurrence: US)
  Receive Date: 20221115
  Receipt Date: 20221115
  Transmission Date: 20230113
  Serious: Yes (Death)
  Sender: FDA-Public Use
  Company Number: US-AVEO ONCOLOGY-2022-AVEO-US000515

PATIENT

DRUGS (17)
  1. FOTIVDA [Suspect]
     Active Substance: TIVOZANIB HYDROCHLORIDE
     Indication: Renal cell carcinoma
     Dosage: 0.89 MG, DAILY FOR 21 DAYS WITH 7 DAYS OFF (28-DAY CYCLE)
     Route: 048
     Dates: start: 20220301, end: 2022
  2. ALLOPURINOL [Concomitant]
     Active Substance: ALLOPURINOL
  3. CARBOXYMETHYLCELLULOSE SODIUM [Concomitant]
     Active Substance: CARBOXYMETHYLCELLULOSE SODIUM
  4. CEFAZOLIN [Concomitant]
     Active Substance: CEFAZOLIN
  5. CLOTRIMAZOLE [Concomitant]
     Active Substance: CLOTRIMAZOLE
  6. CYMBALTA [Concomitant]
     Active Substance: DULOXETINE HYDROCHLORIDE
  7. DIGOXIN [Concomitant]
     Active Substance: DIGOXIN
  8. FISH OIL [Concomitant]
     Active Substance: FISH OIL
  9. LASIX [Concomitant]
     Active Substance: FUROSEMIDE
  10. LOMOTIL [Concomitant]
     Active Substance: ATROPINE SULFATE\DIPHENOXYLATE HYDROCHLORIDE
  11. METOLAZONE [Concomitant]
     Active Substance: METOLAZONE
  12. OCUFLOX [Concomitant]
     Active Substance: OFLOXACIN
  13. PRANDIN [Concomitant]
     Active Substance: REPAGLINIDE
  14. SIMVASTATIN [Concomitant]
     Active Substance: SIMVASTATIN
  15. TRAZODONE [Concomitant]
     Active Substance: TRAZODONE HYDROCHLORIDE
  16. VOTRIENT [Concomitant]
     Active Substance: PAZOPANIB HYDROCHLORIDE
  17. WARFARIN [Concomitant]
     Active Substance: WARFARIN

REACTIONS (1)
  - Death [Fatal]
